FAERS Safety Report 5483841-1 (Version None)
Quarter: 2007Q4

REPORT INFORMATION
  Report Type: 
  Country: None (occurrence: None)
  Receive Date: 20071009
  Receipt Date: 20071009
  Transmission Date: 20080405
  Serious: Yes (Hospitalization)
  Sender: FDA-Public Use
  Company Number: None

PATIENT
  Sex: Male
  Weight: 223 kg

DRUGS (8)
  1. CYCLOPHOSPHAMIDE [Suspect]
     Dosage: 4280 MG
     Dates: end: 20070922
  2. DOXORUBICIN HYDROCHLORIDE [Suspect]
     Dosage: 108 MG
     Dates: end: 20070922
  3. LEUCOVORIN CALCIUM [Suspect]
     Dosage: 315 MG
     Dates: end: 20070923
  4. MESNA [Suspect]
     Dosage: 5100 MG
     Dates: end: 20070922
  5. METHOTREXATE [Suspect]
     Dosage: 642 MG
     Dates: end: 20070921
  6. PREDNISONE [Suspect]
     Dosage: 1075 MG
     Dates: end: 20070925
  7. RITUXIMAB (MOAB C2B8 ANTI CD20, CHIMERIC) [Suspect]
     Dosage: 800 MG
     Dates: end: 20070918
  8. VINCRISTINE SULFATE [Suspect]
     Dosage: 2 MG
     Dates: end: 20070922

REACTIONS (12)
  - BLOOD LACTATE DEHYDROGENASE INCREASED [None]
  - BLOOD PHOSPHORUS INCREASED [None]
  - BLOOD URIC ACID INCREASED [None]
  - CHILLS [None]
  - HYPERHIDROSIS [None]
  - HYPOTENSION [None]
  - HYPOXIA [None]
  - INFUSION RELATED REACTION [None]
  - LYMPHOCYTE COUNT DECREASED [None]
  - OXYGEN SATURATION DECREASED [None]
  - RENAL FAILURE ACUTE [None]
  - TUMOUR LYSIS SYNDROME [None]
